FAERS Safety Report 5689923-3 (Version None)
Quarter: 2008Q1

REPORT INFORMATION
  Report Type: 
  Country: None (occurrence: None)
  Receive Date: 20080331
  Receipt Date: 20080331
  Transmission Date: 20080703
  Serious: No
  Sender: FDA-Public Use
  Company Number: None

PATIENT
  Age: 84 Year
  Sex: Female

DRUGS (2)
  1. XALATAN [Suspect]
     Dosage: 1 DROP AT BEDTIME EACH EYE
     Dates: start: 20080321
  2. XALATAN [Suspect]
     Dosage: 1 DROP AT BEDTIME EACH EYE
     Dates: start: 20080328

REACTIONS (1)
  - PHARMACEUTICAL PRODUCT COMPLAINT [None]
